FAERS Safety Report 15110431 (Version 2)
Quarter: 2018Q3

REPORT INFORMATION
  Report Type: Report from Study
  Country: US (occurrence: US)
  Receive Date: 20180705
  Receipt Date: 20180727
  Transmission Date: 20181010
  Serious: Yes (Other)
  Sender: FDA-Public Use
  Company Number: US-JAZZ-2017-US-005490

PATIENT
  Sex: Female
  Weight: 66.67 kg

DRUGS (13)
  1. LUNESTA [Concomitant]
     Active Substance: ESZOPICLONE
  2. TREXIMET [Concomitant]
     Active Substance: NAPROXEN SODIUM\SUMATRIPTAN SUCCINATE
  3. NAPROXEN. [Concomitant]
     Active Substance: NAPROXEN
  4. NAPROXEN SODIUM. [Concomitant]
     Active Substance: NAPROXEN SODIUM
  5. AMLODIPINE BESYLATE. [Concomitant]
     Active Substance: AMLODIPINE BESYLATE
  6. PHYTOMENADIONE [Concomitant]
     Active Substance: PHYTONADIONE
  7. VITAMIN D3 [Concomitant]
     Active Substance: CHOLECALCIFEROL
  8. XYREM [Suspect]
     Active Substance: SODIUM OXYBATE
     Dosage: 4.5 G, BID
     Route: 048
     Dates: start: 201509
  9. NUVIGIL [Concomitant]
     Active Substance: ARMODAFINIL
  10. WELLBUTRIN [Concomitant]
     Active Substance: BUPROPION HYDROCHLORIDE
  11. BUPROPION HCL [Concomitant]
     Active Substance: BUPROPION HYDROCHLORIDE
  12. XYREM [Suspect]
     Active Substance: SODIUM OXYBATE
     Indication: NARCOLEPSY
     Dosage: 2.25 G, BID
     Route: 048
     Dates: start: 201508, end: 201508
  13. XYREM [Suspect]
     Active Substance: SODIUM OXYBATE
     Dosage: DOSE ADJUSTMENTS
     Route: 048
     Dates: start: 201508, end: 201509

REACTIONS (7)
  - Pre-existing condition improved [Unknown]
  - Therapeutic response unexpected [Unknown]
  - Migraine [Recovering/Resolving]
  - Somnolence [Unknown]
  - Therapeutic response decreased [Unknown]
  - Uterine leiomyoma [Recovered/Resolved]
  - Stress [Unknown]
